FAERS Safety Report 9519543 (Version 3)
Quarter: 2014Q3

REPORT INFORMATION
  Report Type: Spontaneous
  Country: US (occurrence: US)
  Receive Date: 20130912
  Receipt Date: 20140813
  Transmission Date: 20150326
  Serious: Yes (Hospitalization)
  Sender: FDA-Public Use
  Company Number: US-009507513-2008-181319-NL

PATIENT
  Sex: Female
  Weight: 73.5 kg

DRUGS (4)
  1. NUVARING [Suspect]
     Active Substance: ETHINYL ESTRADIOL\ETONOGESTREL
     Indication: MENORRHAGIA
     Dosage: CONTINUING: NO
     Route: 067
     Dates: start: 20070702, end: 20070820
  2. PROMETRIUM [Suspect]
     Active Substance: PROGESTERONE
     Indication: UTERINE LEIOMYOMA
     Dosage: UNK UNK, UNKNOWN
     Dates: start: 20070813, end: 20070820
  3. NUVARING [Suspect]
     Active Substance: ETHINYL ESTRADIOL\ETONOGESTREL
     Indication: CONTRACEPTION
  4. NUVARING [Suspect]
     Active Substance: ETHINYL ESTRADIOL\ETONOGESTREL
     Indication: OFF LABEL USE

REACTIONS (9)
  - Deep vein thrombosis [Unknown]
  - Off label use [Unknown]
  - Stent placement [Unknown]
  - Antiphospholipid syndrome [Unknown]
  - Deep vein thrombosis [Unknown]
  - Varicose vein [Unknown]
  - Deep vein thrombosis [Not Recovered/Not Resolved]
  - Thrombophlebitis [Unknown]
  - Peripheral venous disease [Unknown]

NARRATIVE: CASE EVENT DATE: 20070702
